FAERS Safety Report 7007981-0 (Version None)
Quarter: 2010Q3

REPORT INFORMATION
  Report Type: 
  Country: None (occurrence: None)
  Receive Date: 20100922
  Receipt Date: 20100908
  Transmission Date: 20110219
  Serious: Yes (Other)
  Sender: FDA-Public Use
  Company Number: PHHY2010JP50244

PATIENT
  Sex: Female
  Weight: 54 kg

DRUGS (2)
  1. DIOVAN [Suspect]
     Indication: HYPERTENSION
     Dosage: UNK
     Route: 048
     Dates: start: 20090210, end: 20090512
  2. NORVASC [Suspect]
     Indication: HYPERTENSION
     Dosage: 5 MG
     Route: 048
     Dates: start: 20080603, end: 20090512

REACTIONS (3)
  - CEREBRAL INFARCTION [None]
  - EMBOLIC STROKE [None]
  - SUPRAVENTRICULAR TACHYCARDIA [None]
